FAERS Safety Report 14789289 (Version 2)
Quarter: 2018Q2

REPORT INFORMATION
  Report Type: Spontaneous
  Country: US (occurrence: US)
  Receive Date: 20180423
  Receipt Date: 20180517
  Transmission Date: 20180711
  Serious: Yes (Other)
  Sender: FDA-Public Use
  Company Number: US-AUROBINDO-AUR-APL-2018-020267

PATIENT
  Age: 16 Year
  Sex: Female

DRUGS (6)
  1. DEXAMETHASONE. [Suspect]
     Active Substance: DEXAMETHASONE
     Indication: TRISOMY 21
     Dosage: ON DAY ONE
     Route: 065
  2. VINCRISTINE [Suspect]
     Active Substance: VINCRISTINE
     Indication: TRISOMY 21
     Dosage: ON DAY ONE
     Route: 065
  3. CYTARABINE. [Suspect]
     Active Substance: CYTARABINE
     Indication: TRISOMY 21
     Dosage: ON DAY ONE
     Route: 065
  4. FOLINIC ACID [Suspect]
     Active Substance: LEUCOVORIN
     Indication: TRISOMY 21
     Dosage: ON DAY EIGHT
     Route: 065
  5. METHOTREXATE. [Suspect]
     Active Substance: METHOTREXATE
     Indication: TRISOMY 21
     Dosage: ON DAY EIGHT
     Route: 065
  6. PEGASPARGASE [Suspect]
     Active Substance: PEGASPARGASE
     Indication: TRISOMY 21
     Dosage: ON DAY FIVE
     Route: 065

REACTIONS (7)
  - Ischaemic stroke [Recovering/Resolving]
  - Vasculitis cerebral [Recovering/Resolving]
  - Dysphagia [Recovering/Resolving]
  - Paresis [Recovering/Resolving]
  - Cerebral infarction [Recovering/Resolving]
  - Dysarthria [Recovering/Resolving]
  - Muscular weakness [Recovering/Resolving]
